FAERS Safety Report 5128833-7 (Version None)
Quarter: 2006Q4

REPORT INFORMATION
  Report Type: 
  Country: None (occurrence: None)
  Receive Date: 20061017
  Receipt Date: 20060829
  Transmission Date: 20070319
  Serious: Yes (Hospitalization)
  Sender: FDA-Public Use
  Company Number: US-SANOFI-SYNTHELABO-A03200605464

PATIENT
  Sex: Female

DRUGS (1)
  1. AMBIEN [Suspect]
     Indication: INSOMNIA
     Route: 048
     Dates: start: 20060726, end: 20060727

REACTIONS (6)
  - FALL [None]
  - HAEMORRHAGE [None]
  - JOINT INJURY [None]
  - MOUTH INJURY [None]
  - PAIN [None]
  - SCAPULA FRACTURE [None]
